FAERS Safety Report 14679550 (Version 1)
Quarter: 2018Q1

REPORT INFORMATION
  Report Type: Spontaneous
  Country: US (occurrence: US)
  Receive Date: 20180326
  Receipt Date: 20180326
  Transmission Date: 20180509
  Serious: No
  Sender: FDA-Public Use
  Company Number: US-BAYER-2018-057985

PATIENT
  Sex: Female

DRUGS (1)
  1. MIRALAX [Suspect]
     Active Substance: POLYETHYLENE GLYCOL 3350
     Indication: GASTROINTESTINAL DISORDER
     Route: 065
     Dates: start: 20180322

REACTIONS (3)
  - Discomfort [Unknown]
  - Product use issue [Unknown]
  - Secretion discharge [Unknown]

NARRATIVE: CASE EVENT DATE: 201803
